FAERS Safety Report 8444822-9 (Version None)
Quarter: 2012Q2

REPORT INFORMATION
  Report Type: 
  Country: None (occurrence: None)
  Receive Date: 20120612
  Receipt Date: 20120612
  Transmission Date: 20120825
  Serious: Yes (Other)
  Sender: FDA-Public Use
  Company Number: None

PATIENT
  Age: 51 Year
  Sex: Female
  Weight: 70.3075 kg

DRUGS (1)
  1. DEXAMETHASONE [Suspect]
     Indication: ANKLE FRACTURE
     Dosage: 3 DOSES
     Dates: start: 20120610, end: 20120611

REACTIONS (8)
  - DYSPHONIA [None]
  - ROAD TRAFFIC ACCIDENT [None]
  - CARDIAC FLUTTER [None]
  - INSOMNIA [None]
  - HEADACHE [None]
  - JOINT INJURY [None]
  - MIGRAINE [None]
  - ABNORMAL SENSATION IN EYE [None]
